FAERS Safety Report 5535270-X (Version None)
Quarter: 2007Q4

REPORT INFORMATION
  Report Type: 
  Country: None (occurrence: None)
  Receive Date: 20071204
  Receipt Date: 20071116
  Transmission Date: 20080405
  Serious: Yes (Other)
  Sender: FDA-Public Use
  Company Number: 2007S1012015

PATIENT
  Age: 53 Year
  Sex: Male

DRUGS (7)
  1. ETOPOSIDE [Suspect]
     Dates: start: 19961001
  2. CYCLOPHOSPHAMIDE [Suspect]
     Dates: start: 19961001
  3. CYTARABINE [Concomitant]
  4. IDARABUCIN [Concomitant]
  5. CYCLOSPORINE [Suspect]
     Indication: GRAFT VERSUS HOST DISEASE
  6. METHOTREXATE [Suspect]
     Indication: GRAFT VERSUS HOST DISEASE
  7. CORTICOSTEROIDS [Suspect]
     Indication: CHRONIC GRAFT VERSUS HOST DISEASE

REACTIONS (2)
  - ACUTE GRAFT VERSUS HOST DISEASE IN LIVER [None]
  - LIP AND/OR ORAL CAVITY CANCER [None]
